FAERS Safety Report 4997220-4 (Version None)
Quarter: 2006Q2

REPORT INFORMATION
  Report Type: 
  Country: None (occurrence: None)
  Receive Date: 20060505
  Receipt Date: 20060505
  Transmission Date: 20061013
  Serious: Yes (Hospitalization)
  Sender: FDA-Public Use
  Company Number: None

PATIENT
  Sex: Female
  Weight: 79.3795 kg

DRUGS (1)
  1. KETEK [Suspect]
     Indication: SINUSITIS
     Dates: start: 20050820, end: 20050830

REACTIONS (4)
  - ABDOMINAL DISCOMFORT [None]
  - HEPATITIS [None]
  - INFLUENZA LIKE ILLNESS [None]
  - PRURITUS [None]
